FAERS Safety Report 6851202-6 (Version None)
Quarter: 2010Q3

REPORT INFORMATION
  Report Type: 
  Country: None (occurrence: None)
  Receive Date: 20100716
  Receipt Date: 20100708
  Transmission Date: 20110219
  Serious: Yes (Hospitalization)
  Sender: FDA-Public Use
  Company Number: US-AMGEN-KDC417130

PATIENT
  Sex: Female
  Weight: 116.8 kg

DRUGS (9)
  1. ETANERCEPT [Suspect]
     Indication: PSORIASIS
     Route: 058
     Dates: start: 20100415
  2. ETANERCEPT - NON-AMGEN IMP (METHOTREXATE - BLINDED) [Suspect]
     Route: 048
     Dates: start: 20100415
  3. ALBUTEROL SULATE [Concomitant]
  4. PRILOSEC [Concomitant]
  5. ZANAFLEX [Concomitant]
     Route: 048
  6. ADVAIR DISKUS 100/50 [Concomitant]
  7. POTASSIUM CHLORIDE [Concomitant]
  8. SINGULAIR [Concomitant]
     Route: 048
  9. MEDROL [Concomitant]

REACTIONS (1)
  - ASTHMA [None]
